FAERS Safety Report 5233607-2 (Version None)
Quarter: 2007Q1

REPORT INFORMATION
  Report Type: 
  Country: None (occurrence: None)
  Receive Date: 20070208
  Receipt Date: 20070129
  Transmission Date: 20070707
  Serious: Yes (Other)
  Sender: FDA-Public Use
  Company Number: FR-JNJFOC-20070107264

PATIENT
  Age: 48 Year
  Sex: Male

DRUGS (4)
  1. REMICADE [Suspect]
     Route: 042
  2. REMICADE [Suspect]
     Route: 042
  3. REMICADE [Suspect]
     Route: 042
  4. REMICADE [Suspect]
     Indication: SPONDYLOARTHROPATHY
     Dosage: FIRST INFUSION
     Route: 042

REACTIONS (3)
  - DRUG INEFFECTIVE [None]
  - PROSTATITIS [None]
  - PYELONEPHRITIS [None]
